FAERS Safety Report 23697550 (Version 2)
Quarter: 2024Q2

REPORT INFORMATION
  Report Type: Report from Study
  Country: US (occurrence: US)
  Receive Date: 20240402
  Receipt Date: 20240418
  Transmission Date: 20240716
  Serious: Yes (Other)
  Sender: FDA-Public Use
  Company Number: US-OTSUKA-2024_008556

PATIENT
  Age: 55 Year
  Sex: Female
  Weight: 78.9 kg

DRUGS (2)
  1. TOLVAPTAN [Suspect]
     Active Substance: TOLVAPTAN
     Indication: Chronic kidney disease
     Dosage: 90 MG, QD (IN THE MORNING)
     Route: 048
  2. TOLVAPTAN [Suspect]
     Active Substance: TOLVAPTAN
     Dosage: 30 MG, QD (IN THE EVENING)
     Route: 048

REACTIONS (20)
  - Type 2 diabetes mellitus [Unknown]
  - Blood glucose increased [Not Recovered/Not Resolved]
  - Pseudohyponatraemia [Unknown]
  - Neutrophil count increased [Recovered/Resolved]
  - Blood chloride decreased [Recovering/Resolving]
  - White blood cells urine abnormal [Unknown]
  - Glucose urine present [Not Recovered/Not Resolved]
  - Urinary sediment present [Unknown]
  - Urine albumin/creatinine ratio increased [Unknown]
  - Urine protein/creatinine ratio increased [Recovering/Resolving]
  - Bacterial test positive [Unknown]
  - White blood cell count increased [Unknown]
  - Blood sodium decreased [Not Recovered/Not Resolved]
  - Blood alkaline phosphatase increased [Recovering/Resolving]
  - Blood creatinine increased [Not Recovered/Not Resolved]
  - Blood potassium increased [Not Recovered/Not Resolved]
  - Glomerular filtration rate decreased [Not Recovered/Not Resolved]
  - Weight decreased [Unknown]
  - Blood uric acid increased [Recovered/Resolved]
  - Product use in unapproved indication [Unknown]

NARRATIVE: CASE EVENT DATE: 20210109
